FAERS Safety Report 5898363-3 (Version None)
Quarter: 2008Q3

REPORT INFORMATION
  Report Type: 
  Country: None (occurrence: None)
  Receive Date: 20080925
  Receipt Date: 20070927
  Transmission Date: 20090109
  Serious: No
  Sender: FDA-Public Use
  Company Number: A0685408A

PATIENT
  Sex: Male

DRUGS (3)
  1. WELLBUTRIN XL [Suspect]
     Indication: DEPRESSION
     Dosage: 150MG AT NIGHT
     Route: 048
     Dates: start: 20060101
  2. LESCOL XL [Concomitant]
  3. PLAVIX [Concomitant]
     Dosage: 75MG AT NIGHT
     Route: 065

REACTIONS (1)
  - TINNITUS [None]
